FAERS Safety Report 7928905-5 (Version None)
Quarter: 2011Q4

REPORT INFORMATION
  Report Type: 
  Country: None (occurrence: None)
  Receive Date: 20111118
  Receipt Date: 20111104
  Transmission Date: 20120403
  Serious: Yes (Death)
  Sender: FDA-Public Use
  Company Number: US-WATSON-2011-19032

PATIENT
  Sex: Male

DRUGS (5)
  1. NAUSEA MEDS [Concomitant]
     Indication: PRODUCT USED FOR UNKNOWN INDICATION
     Dosage: UNK
     Route: 065
  2. ANTIBIOTICS [Concomitant]
     Indication: PRODUCT USED FOR UNKNOWN INDICATION
     Dosage: UNK
     Route: 065
  3. WEIGHT GAIN MEDS [Concomitant]
     Indication: PRODUCT USED FOR UNKNOWN INDICATION
     Dosage: UNK
     Route: 065
  4. MS CONTIN [Suspect]
     Indication: NEOPLASM MALIGNANT
     Dosage: UNK
     Route: 048
  5. NORCO [Suspect]
     Indication: NEOPLASM MALIGNANT
     Dosage: UNK
     Route: 048

REACTIONS (1)
  - SQUAMOUS CELL CARCINOMA [None]
